FAERS Safety Report 15526447 (Version 1)
Quarter: 2018Q4

REPORT INFORMATION
  Report Type: Spontaneous
  Country: JP (occurrence: JP)
  Receive Date: 20181019
  Receipt Date: 20181019
  Transmission Date: 20190205
  Serious: Yes (Death)
  Sender: FDA-Public Use
  Company Number: JP-BEH-2018095979

PATIENT
  Age: 53 Year
  Sex: Male

DRUGS (1)
  1. KCENTRA [Suspect]
     Active Substance: COAGULATION FACTOR IX HUMAN\COAGULATION FACTOR VII HUMAN\COAGULATION FACTOR X HUMAN\PROTEIN C\PROTEIN S HUMAN\PROTHROMBIN
     Indication: HAEMORRHAGIC DIATHESIS
     Dosage: 1000 IU, UNK
     Route: 065
     Dates: start: 20181015, end: 20181015

REACTIONS (2)
  - Shock haemorrhagic [Fatal]
  - Traumatic shock [Fatal]

NARRATIVE: CASE EVENT DATE: 20181015
